FAERS Safety Report 18982457 (Version 3)
Quarter: 2021Q4

REPORT INFORMATION
  Report Type: Report from Study
  Country: US (occurrence: US)
  Receive Date: 20210308
  Receipt Date: 20211201
  Transmission Date: 20220303
  Serious: Yes (Other)
  Sender: FDA-Public Use
  Company Number: US-NOVARTISTESTPH-NVSC2021US053381

PATIENT
  Sex: Male

DRUGS (1)
  1. ENTRESTO [Suspect]
     Active Substance: SACUBITRIL\VALSARTAN
     Indication: Product used for unknown indication
     Dosage: UNK
     Route: 048
     Dates: start: 202102

REACTIONS (6)
  - Heart rate increased [Unknown]
  - Stress [Recovering/Resolving]
  - Pollakiuria [Unknown]
  - Anxiety [Recovering/Resolving]
  - Fear [Recovering/Resolving]
  - Weight increased [Unknown]
